FAERS Safety Report 4730243-9 (Version None)
Quarter: 2005Q3

REPORT INFORMATION
  Report Type: 
  Country: None (occurrence: None)
  Receive Date: 20050801
  Receipt Date: 20030911
  Transmission Date: 20060218
  Serious: Yes (Life-Threatening, Hospitalization)
  Sender: FDA-Public Use
  Company Number: PL-ROCHE-346719

PATIENT
  Age: 57 Year
  Sex: Male
  Weight: 67 kg

DRUGS (3)
  1. PEG-INTRON [Suspect]
     Route: 058
     Dates: start: 20030128, end: 20030908
  2. RIBAVIRIN [Suspect]
     Route: 048
     Dates: start: 20030128, end: 20030909
  3. KETOKONAZOL [Concomitant]
     Dates: start: 20030923, end: 20031102

REACTIONS (7)
  - ASTHENIA [None]
  - ENDOCARDITIS [None]
  - GASTROINTESTINAL HAEMORRHAGE [None]
  - ORCHITIS [None]
  - RENAL FAILURE ACUTE [None]
  - RESPIRATORY TRACT INFECTION [None]
  - SEPSIS [None]
